FAERS Safety Report 7284098-1 (Version None)
Quarter: 2011Q1

REPORT INFORMATION
  Report Type: 
  Country: None (occurrence: None)
  Receive Date: 20110209
  Receipt Date: 20100208
  Transmission Date: 20110831
  Serious: No
  Sender: FDA-Public Use
  Company Number: US-PFIZER INC-2009284156

PATIENT
  Sex: Male
  Weight: 88.5 kg

DRUGS (5)
  1. CADUET [Suspect]
     Indication: BLOOD CHOLESTEROL ABNORMAL
     Dosage: [AMLODIPINE BESYLATE 5MG]/[ATORVASTATIN CALCIUM 20MG]
     Route: 048
     Dates: start: 20090101
  2. ACETYLSALICYLIC ACID [Concomitant]
     Dosage: UNK
  3. GLUCOVANCE [Concomitant]
     Indication: TYPE 2 DIABETES MELLITUS
     Dosage: [GLYBURIDE 5MG]/[METFORMIN HYDROCHLORIDE 500MG]
     Route: 048
  4. ACTOS [Concomitant]
     Indication: TYPE 2 DIABETES MELLITUS
     Dosage: 15 MG, 2X/DAY
     Route: 048
  5. VALSARTAN [Concomitant]
     Indication: HYPERTENSION
     Dosage: 320 MG, 1X/DAY
     Route: 048

REACTIONS (1)
  - PLATELET COUNT DECREASED [None]
